FAERS Safety Report 8167841-9 (Version None)
Quarter: 2012Q1

REPORT INFORMATION
  Report Type: 
  Country: None (occurrence: None)
  Receive Date: 20120227
  Receipt Date: 20120222
  Transmission Date: 20120608
  Serious: Yes (Hospitalization)
  Sender: FDA-Public Use
  Company Number: JP-EISAI INC-E2020-10379-SPO-JP

PATIENT
  Age: 95 Year
  Sex: Female

DRUGS (1)
  1. ARICEPT [Suspect]
     Indication: DEMENTIA ALZHEIMER'S TYPE
     Route: 048
     Dates: end: 20111211

REACTIONS (4)
  - PARKINSONISM [None]
  - GAIT DISTURBANCE [None]
  - EATING DISORDER [None]
  - DELIRIUM [None]
